FAERS Safety Report 9698285 (Version 6)
Quarter: 2014Q3

REPORT INFORMATION
  Report Type: Report from Study
  Country: KR (occurrence: KR)
  Receive Date: 20131120
  Receipt Date: 20140922
  Transmission Date: 20150326
  Serious: Yes (Hospitalization)
  Sender: FDA-Public Use
  Company Number: KR-GLAXOSMITHKLINE-B0944888A

PATIENT
  Age: 27 Year
  Sex: Female
  Weight: 67 kg

DRUGS (16)
  1. BELIMUMAB [Suspect]
     Active Substance: BELIMUMAB
     Indication: SYSTEMIC LUPUS ERYTHEMATOSUS
     Route: 042
     Dates: start: 20121108, end: 20131203
  2. MACPERAN [Concomitant]
     Indication: GASTROINTESTINAL DISORDER
     Route: 048
     Dates: start: 20131114, end: 20131114
  3. ROWACHOL [Concomitant]
     Indication: GASTROINTESTINAL DISORDER
     Route: 048
     Dates: start: 20131114, end: 20131115
  4. ULCERMIN [Concomitant]
     Active Substance: SUCRALFATE
     Indication: GASTROINTESTINAL DISORDER
     Route: 048
     Dates: start: 20131113, end: 20131113
  5. GASTER [Concomitant]
     Active Substance: FAMOTIDINE
     Indication: GASTROINTESTINAL DISORDER
     Route: 048
     Dates: start: 20131112, end: 20131114
  6. CAMOSTAT MESILATE [Concomitant]
     Active Substance: CAMOSTAT MESYLATE
     Indication: GASTROINTESTINAL DISORDER
     Route: 048
     Dates: start: 20131114, end: 20131129
  7. MACPERAN [Concomitant]
     Indication: GASTROINTESTINAL DISORDER
     Route: 042
     Dates: start: 20131111, end: 20131113
  8. GASTER [Concomitant]
     Active Substance: FAMOTIDINE
     Indication: GASTROINTESTINAL DISORDER
     Route: 042
     Dates: start: 20131111, end: 20131111
  9. THIAMINE HYDROCHLORIDE. [Concomitant]
     Active Substance: THIAMINE HYDROCHLORIDE
     Indication: SUPPLEMENTATION THERAPY
     Route: 048
     Dates: start: 20131115, end: 20131129
  10. NORMAL SALINE [Concomitant]
     Active Substance: SODIUM CHLORIDE
     Indication: FLUID REPLACEMENT
     Route: 042
     Dates: start: 20131112, end: 20131113
  11. PANTOPRAZOLE [Concomitant]
     Active Substance: PANTOPRAZOLE SODIUM
     Indication: GASTROINTESTINAL DISORDER
     Route: 042
     Dates: start: 20131111, end: 20131111
  12. NORMAL SALINE [Concomitant]
     Active Substance: SODIUM CHLORIDE
     Indication: INJECTION
     Route: 042
     Dates: start: 20131111, end: 20131111
  13. VITAMEDIN [Concomitant]
     Active Substance: CYANOCOBALAMIN\PYRIDOXINE HYDROCHLORIDE\THIAMINE
     Indication: SUPPLEMENTATION THERAPY
     Route: 048
     Dates: start: 20131115, end: 20131115
  14. CURAN [Concomitant]
     Indication: GASTROINTESTINAL DISORDER
     Route: 042
     Dates: start: 20131111, end: 20131114
  15. MUCOSTA [Concomitant]
     Active Substance: REBAMIPIDE
     Indication: GASTROINTESTINAL DISORDER
     Route: 048
     Dates: start: 20131112, end: 20131129
  16. NORZYME [Concomitant]
     Indication: GASTROINTESTINAL DISORDER
     Route: 048
     Dates: start: 20131114, end: 20131115

REACTIONS (1)
  - Pancreatitis chronic [Recovered/Resolved]

NARRATIVE: CASE EVENT DATE: 20131111
